FAERS Safety Report 9219753 (Version 1)
Quarter: 2013Q2

REPORT INFORMATION
  Report Type: Spontaneous
  Country: US (occurrence: None)
  Receive Date: 20130408
  Receipt Date: 20130408
  Transmission Date: 20140414
  Serious: Yes (Hospitalization)
  Sender: FDA-Public Use
  Company Number: None

PATIENT
  Sex: Male

DRUGS (1)
  1. XELODA [Suspect]
     Indication: PANCREATIC CARCINOMA
     Dosage: 2000MG  BID MONDAY THROUGH   PO
     Route: 048
     Dates: start: 20130214, end: 20130314

REACTIONS (2)
  - Diarrhoea [None]
  - Full blood count decreased [None]
